FAERS Safety Report 6401357-2 (Version None)
Quarter: 2009Q4

REPORT INFORMATION
  Report Type: 
  Country: None (occurrence: None)
  Receive Date: 20091015
  Receipt Date: 20070305
  Transmission Date: 20100525
  Serious: Yes (Disabling)
  Sender: FDA-Public Use
  Company Number: US-ASTRAZENECA-2006UW10764

PATIENT
  Sex: Female
  Weight: 113.4 kg

DRUGS (5)
  1. SEROQUEL [Suspect]
     Indication: AFFECTIVE DISORDER
     Dosage: 25 TO 300 MG
     Route: 048
     Dates: start: 20040810, end: 20060619
  2. SEROQUEL [Suspect]
     Indication: INSOMNIA
     Dosage: 25 TO 300 MG
     Route: 048
     Dates: start: 20040810, end: 20060619
  3. LAMICTAL [Concomitant]
     Indication: AFFECTIVE DISORDER
     Dosage: 25 TO 300 MG
     Dates: start: 20040609
  4. LAMICTAL [Concomitant]
     Indication: DEPRESSION
     Dosage: 25 TO 300 MG
     Dates: start: 20040609
  5. CYMBALTA [Concomitant]
     Dates: start: 20050914

REACTIONS (1)
  - ILL-DEFINED DISORDER [None]
